FAERS Safety Report 24526983 (Version 2)
Quarter: 2024Q4

REPORT INFORMATION
  Report Type: Report from Study
  Country: US (occurrence: US)
  Receive Date: 20241021
  Receipt Date: 20241026
  Transmission Date: 20250114
  Serious: Yes (Other)
  Sender: ABBVIE
  Company Number: US-ABBVIE-5941766

PATIENT
  Sex: Male
  Weight: 79.4 kg

DRUGS (6)
  1. SKYRIZI [Suspect]
     Active Substance: RISANKIZUMAB-RZAA
     Indication: Crohn^s disease
     Dosage: FREQUENCY-56 DAYS?FORM STRENGTH: 360 MILLIGRAM
     Route: 058
     Dates: start: 20240118
  2. SKYRIZI [Suspect]
     Active Substance: RISANKIZUMAB-RZAA
     Indication: Crohn^s disease
     Dosage: FORM STRENGTH: 600 MILLIGRAM
     Route: 042
     Dates: start: 2024, end: 2024
  3. LOSARTAN [Concomitant]
     Active Substance: LOSARTAN
     Indication: Hypertension
  4. ATORVASTATIN [Concomitant]
     Active Substance: ATORVASTATIN
     Indication: Blood cholesterol abnormal
  5. METFORMIN [Concomitant]
     Active Substance: METFORMIN HYDROCHLORIDE
     Indication: Diabetes mellitus
  6. GLIMEPIRIDE [Concomitant]
     Active Substance: GLIMEPIRIDE
     Indication: Diabetes mellitus

REACTIONS (7)
  - Peripheral arterial occlusive disease [Not Recovered/Not Resolved]
  - Localised infection [Recovering/Resolving]
  - Poor peripheral circulation [Unknown]
  - Peripheral artery occlusion [Recovered/Resolved]
  - Skin ulcer [Recovering/Resolving]
  - Peripheral swelling [Unknown]
  - Peripheral vein occlusion [Not Recovered/Not Resolved]

NARRATIVE: CASE EVENT DATE: 20240101
